FAERS Safety Report 8078504-2 (Version None)
Quarter: 2012Q1

REPORT INFORMATION
  Report Type: 
  Country: None (occurrence: None)
  Receive Date: 20120127
  Receipt Date: 20110321
  Transmission Date: 20120608
  Serious: No
  Sender: FDA-Public Use
  Company Number: PR-ABBOTT-11P-131-0706636-00

PATIENT
  Sex: Female
  Weight: 77.18 kg

DRUGS (10)
  1. CRESTOR [Concomitant]
     Indication: BLOOD CHOLESTEROL INCREASED
  2. PLAVIX [Concomitant]
     Indication: CARDIAC DISORDER
  3. ZETIA [Concomitant]
     Indication: BLOOD TRIGLYCERIDES INCREASED
  4. IMDUR [Concomitant]
     Indication: CARDIAC DISORDER
  5. HUMIRA [Suspect]
     Indication: RHEUMATOID ARTHRITIS
     Route: 058
  6. ZETIA [Concomitant]
     Indication: BLOOD CHOLESTEROL INCREASED
  7. CRESTOR [Concomitant]
     Indication: BLOOD TRIGLYCERIDES INCREASED
  8. HUMIRA [Suspect]
     Dates: start: 20110315
  9. LOZOL [Concomitant]
     Indication: HEPATIC FUNCTION ABNORMAL
     Dosage: 2.5 MG
     Route: 048
  10. ASPIRIN [Concomitant]
     Indication: CARDIAC DISORDER
     Dosage: 325 MG
     Route: 048

REACTIONS (2)
  - HEPATIC ENZYME INCREASED [None]
  - COUGH [None]
